FAERS Safety Report 9911513 (Version 1)
Quarter: 2014Q1

REPORT INFORMATION
  Report Type: Report from Study
  Country: MX (occurrence: MX)
  Receive Date: 20140219
  Receipt Date: 20140219
  Transmission Date: 20141002
  Serious: Yes (Death, Other)
  Sender: FDA-Public Use
  Company Number: PHHY2014MX020438

PATIENT
  Age: 60 Year
  Sex: Female

DRUGS (2)
  1. GALVUS MET [Suspect]
     Indication: DIABETES MELLITUS
     Dosage: UKN (500/50MG) UNK
     Route: 048
  2. EXFORGE [Suspect]
     Dosage: 1 UKN, DAILY

REACTIONS (1)
  - Pneumonia [Fatal]
